FAERS Safety Report 9245102 (Version 1)
Quarter: 2013Q1

REPORT INFORMATION
  Report Type: Spontaneous
  Country: US (occurrence: None)
  Receive Date: 20121130
  Receipt Date: 20121130
  Transmission Date: 20140127
  Serious: Yes (Other)
  Sender: FDA-Public Use
  Company Number: PHEH2012US016505

PATIENT
  Sex: Female

DRUGS (22)
  1. VOLTAREN (DICLOFENAC SODIUM) [Suspect]
  2. DEMEROL [Suspect]
  3. ASPIRIN (ACETYLSALIC ACID) [Concomitant]
  4. ULTRAM (TRAMADOL HYDROCHLORIDE) [Concomitant]
  5. ARICEPT (DONEPEZIL HYDROCHLORIDE) [Concomitant]
  6. SIMVASTATIN (SIMVASTATIN) [Concomitant]
  7. FUROSEMIDE (FUROSEMIDE) [Concomitant]
  8. LYRICA (PREGABALIN) [Concomitant]
  9. OMEPRAZOLE (OMEPRAZOLE) [Concomitant]
  10. FOLIC ACID (FOLIC ACID) [Concomitant]
  11. ALBUTEROL (ALBUTEROL) [Concomitant]
  12. TRIAMCINOLONE (TRIAMCINOLONE) [Concomitant]
  13. EXIREL (PIRBUTEROL) [Concomitant]
  14. METHOTREXATE (METHOTREXATE) [Concomitant]
  15. LOSARTAN (LOSARTAN) [Concomitant]
  16. MIRALAX [Concomitant]
  17. VITAMIN D (ERGOCALCIFEROL) [Concomitant]
  18. CYCLOBENZAPRINE (CYCLOBENZAPRINE) [Concomitant]
  19. INDOMETHACIN (INDOMETACIN) [Concomitant]
  20. CLOBETASOL (CLOBETASOL) [Concomitant]
  21. KEFLEX (CEFALEXIN MONOHYDRATE) [Concomitant]
  22. PREDNISONE (PREDNISONE) [Concomitant]

REACTIONS (1)
  - Drug hypersensitivity [None]
